FAERS Safety Report 24766763 (Version 1)
Quarter: 2024Q4

REPORT INFORMATION
  Report Type: Spontaneous
  Country: FR (occurrence: FR)
  Receive Date: 20241223
  Receipt Date: 20241223
  Transmission Date: 20250115
  Serious: Yes (Hospitalization)
  Sender: MYLAN
  Company Number: None

PATIENT
  Age: 52 Year
  Sex: Female

DRUGS (5)
  1. LANSOPRAZOLE [Suspect]
     Active Substance: LANSOPRAZOLE
     Indication: Hiatus hernia
     Dosage: 15 MILLIGRAM, QD
     Route: 048
     Dates: end: 202407
  2. RITUXIMAB [Suspect]
     Active Substance: RITUXIMAB
     Indication: Neuromyelitis optica spectrum disorder
     Dosage: 1 GRAM, EVERY 6 MONTH
     Route: 042
     Dates: start: 202206, end: 202401
  3. PREDNISONE [Suspect]
     Active Substance: PREDNISONE
     Indication: Neuromyelitis optica spectrum disorder
     Dosage: 8 MILLIGRAM, QD
     Route: 048
  4. CALCIUM CARBONATE\CHOLECALCIFEROL [Suspect]
     Active Substance: CALCIUM CARBONATE\CHOLECALCIFEROL
     Indication: Mineral supplementation
     Dosage: 500 MILLIGRAM, QD
     Route: 048
  5. POTASSIUM CHLORIDE [Suspect]
     Active Substance: POTASSIUM CHLORIDE
     Indication: Mineral supplementation
     Dosage: 600 MILLIGRAM, QD
     Route: 048

REACTIONS (1)
  - Organising pneumonia [Not Recovered/Not Resolved]

NARRATIVE: CASE EVENT DATE: 20240401
